FAERS Safety Report 10548547 (Version 1)
Quarter: 2014Q4

REPORT INFORMATION
  Report Type: Spontaneous
  Country: US (occurrence: None)
  Receive Date: 20141027
  Receipt Date: 20141027
  Transmission Date: 20150529
  Serious: No
  Sender: FDA-Public Use
  Company Number: None

PATIENT
  Age: 55 Year
  Sex: Male
  Weight: 158.76 kg

DRUGS (15)
  1. PIOGLITAZONE [Concomitant]
     Active Substance: PIOGLITAZONE
  2. POTASSIUM [Concomitant]
     Active Substance: POTASSIUM
  3. MS CONTIN [Concomitant]
     Active Substance: MORPHINE SULFATE
  4. QUINAPRIL [Concomitant]
     Active Substance: QUINAPRIL\QUINAPRIL HYDROCHLORIDE
  5. ALLOPURINOL. [Concomitant]
     Active Substance: ALLOPURINOL
  6. SENNA [Concomitant]
     Active Substance: SENNA LEAF\SENNOSIDES\SENNOSIDES A AND B
  7. RELISTOR [Suspect]
     Active Substance: METHYLNALTREXONE BROMIDE
     Indication: PAIN
     Route: 058
     Dates: start: 20140730, end: 20141026
  8. ATENOLOL. [Concomitant]
     Active Substance: ATENOLOL
  9. BUMETANIDE(BUMEX) [Concomitant]
  10. HYDRALAZINE [Concomitant]
     Active Substance: HYDRALAZINE HYDROCHLORIDE
  11. RELISTOR [Suspect]
     Active Substance: METHYLNALTREXONE BROMIDE
     Indication: CONSTIPATION
     Route: 058
     Dates: start: 20140730, end: 20141026
  12. KLONAPIN [Concomitant]
  13. CITALOPRAM [Concomitant]
     Active Substance: CITALOPRAM HYDROBROMIDE
  14. SPIRONOLACTONE. [Concomitant]
     Active Substance: SPIRONOLACTONE
  15. ENBREL [Concomitant]
     Active Substance: ETANERCEPT

REACTIONS (1)
  - Therapeutic response unexpected [None]

NARRATIVE: CASE EVENT DATE: 20141026
